FAERS Safety Report 7545208-1 (Version None)
Quarter: 2011Q2

REPORT INFORMATION
  Report Type: 
  Country: None (occurrence: None)
  Receive Date: 20110614
  Receipt Date: 20110531
  Transmission Date: 20111010
  Serious: Yes (Hospitalization)
  Sender: FDA-Public Use
  Company Number: CA-JNJFOC-20110601285

PATIENT
  Sex: Male
  Weight: 75.7 kg

DRUGS (3)
  1. RABEPRAZOLE SODIUM [Concomitant]
     Dosage: EVERY MORNING, FOR 1 YEAR
     Route: 065
  2. REMICADE [Suspect]
     Indication: PRODUCT USED FOR UNKNOWN INDICATION
     Dosage: 100 VIAL
     Route: 042
  3. OLMESARTAN MEDOXOMIL AND HYDROCHLOROTHIZIDE [Concomitant]
     Dosage: 5 MONTHS

REACTIONS (1)
  - BLOOD POTASSIUM DECREASED [None]
